FAERS Safety Report 4866891-5 (Version None)
Quarter: 2005Q4

REPORT INFORMATION
  Report Type: 
  Country: None (occurrence: None)
  Receive Date: 20051222
  Receipt Date: 20051210
  Transmission Date: 20060501
  Serious: Yes (Hospitalization, Other)
  Sender: FDA-Public Use
  Company Number: 430003L05BEL

PATIENT
  Age: 51 Year
  Sex: Female

DRUGS (1)
  1. MITOXANTRONE [Suspect]
     Indication: MULTIPLE SCLEROSIS
     Dosage: 12 MG/M2, INTRAVENOUS
     Route: 042
     Dates: start: 19970501, end: 19991201

REACTIONS (4)
  - BEDRIDDEN [None]
  - CARDIAC FAILURE [None]
  - CHEST PAIN [None]
  - TRICUSPID VALVE INCOMPETENCE [None]
